FAERS Safety Report 8035919-6 (Version None)
Quarter: 2011Q4

REPORT INFORMATION
  Report Type: 
  Country: None (occurrence: None)
  Receive Date: 20111202
  Receipt Date: 20110913
  Transmission Date: 20120403
  Serious: No
  Sender: FDA-Public Use
  Company Number: PHEH2011US04444

PATIENT

DRUGS (1)
  1. FANAPT [Suspect]
     Dosage: , OT
     Dates: start: 20100101

REACTIONS (1)
  - ENURESIS [None]
